FAERS Safety Report 24073483 (Version 1)
Quarter: 2024Q3

REPORT INFORMATION
  Report Type: Spontaneous
  Country: CA (occurrence: None)
  Receive Date: 20240710
  Receipt Date: 20240710
  Transmission Date: 20241017
  Serious: Yes (Other)
  Sender: ORION
  Company Number: CA-PFIZER INC-202400207004

PATIENT
  Age: 67 Year
  Sex: Male
  Weight: 75 kg

DRUGS (4)
  1. METHOTREXATE [Suspect]
     Active Substance: METHOTREXATE
     Indication: Product used for unknown indication
     Dates: start: 20230927
  2. FOLIC ACID [Concomitant]
     Active Substance: FOLIC ACID
     Dosage: 2X/WEEK
  3. HYDROXYCHLOROQUINE [Concomitant]
     Active Substance: HYDROXYCHLOROQUINE
     Dates: start: 20231228, end: 20240328
  4. SULFASALAZINE [Concomitant]
     Active Substance: SULFASALAZINE
     Dates: start: 20240330, end: 20240627

REACTIONS (2)
  - Limb injury [Unknown]
  - Tenosynovitis [Unknown]

NARRATIVE: CASE EVENT DATE: 20230101
